FAERS Safety Report 6137769-4 (Version None)
Quarter: 2009Q1

REPORT INFORMATION
  Report Type: 
  Country: None (occurrence: None)
  Receive Date: 20090331
  Receipt Date: 20090319
  Transmission Date: 20090719
  Serious: Yes (Hospitalization)
  Sender: FDA-Public Use
  Company Number: CA-AVENTIS-200821744GDDC

PATIENT
  Age: 70 Year
  Sex: Male
  Weight: 77.4 kg

DRUGS (18)
  1. AFLIBERCEPT [Suspect]
     Route: 042
     Dates: start: 20081204, end: 20081204
  2. DOCETAXEL [Suspect]
     Route: 042
     Dates: start: 20081204, end: 20081204
  3. PREDNISONE [Suspect]
     Route: 048
     Dates: start: 20081001, end: 20081204
  4. ELIGARD [Concomitant]
     Dosage: DOSE: UNK
     Dates: start: 20050923
  5. METFORMIN HCL [Concomitant]
     Dosage: DOSE: UNK
     Dates: start: 20070201
  6. ALTACE [Concomitant]
     Dosage: DOSE: UNK
     Dates: start: 20040101
  7. INDAPAMIDE [Concomitant]
     Dosage: DOSE: UNK
     Dates: start: 20040101
  8. MULTI-VITAMINS [Concomitant]
     Dosage: DOSE: UNK
     Dates: start: 20060101
  9. MULTIVITAMINS WITH MINERALS        /90003801/ [Concomitant]
     Dosage: DOSE: UNK
     Dates: start: 20070101, end: 20080930
  10. INFLUENZA VACCINE [Concomitant]
     Dosage: DOSE: UNK
     Dates: start: 20081017, end: 20081017
  11. COUGH AND COLD PREPARATIONS [Concomitant]
     Dosage: DOSE: UNK
     Dates: start: 20081011, end: 20081012
  12. AMOXICILLIN [Concomitant]
     Dosage: DOSE: UNK
     Dates: start: 20081103, end: 20081113
  13. AMOXICILLIN [Concomitant]
     Dosage: DOSE: UNK
     Dates: start: 20081117, end: 20081128
  14. NORVASC [Concomitant]
     Dosage: DOSE: UNK
     Dates: start: 20081205
  15. EX-LAX                             /00146601/ [Concomitant]
     Dosage: DOSE: UNK
     Dates: start: 20081209
  16. GLICLAZIDE [Concomitant]
     Dosage: DOSE: UNK
     Dates: start: 20081217
  17. ARTIFICIAL TEARS                   /90046201/ [Concomitant]
     Dosage: DOSE: UNK
     Dates: start: 20090108
  18. AMPICILLIN [Concomitant]
     Dosage: DOSE: UNK
     Dates: start: 20090102, end: 20090109

REACTIONS (1)
  - HYPOMAGNESAEMIA [None]
